FAERS Safety Report 24644649 (Version 1)
Quarter: 2024Q4

REPORT INFORMATION
  Report Type: Spontaneous
  Country: GB (occurrence: GB)
  Receive Date: 20241121
  Receipt Date: 20241121
  Transmission Date: 20250114
  Serious: Yes (Life-Threatening, Other)
  Sender: BAXTER
  Company Number: None

PATIENT
  Sex: Male

DRUGS (2)
  1. SODIUM CHLORIDE [Suspect]
     Active Substance: SODIUM CHLORIDE
     Indication: Adverse drug reaction
     Dosage: (DOSE FORM: SOLUTION FOR INFUSION) DOSAGE TEXT: 250 ML, AT AN UNSPECIFIED FREQUENCY
     Route: 065
     Dates: start: 20241115, end: 20241115
  2. FERRIC DERISOMALTOSE [Suspect]
     Active Substance: FERRIC DERISOMALTOSE
     Indication: Anaemia
     Dosage: DOSAGE TEXT: 2000 MG ONCE OVER 30 MINS
     Route: 065
     Dates: start: 20241115, end: 20241115

REACTIONS (4)
  - Loss of consciousness [Recovered/Resolved]
  - Pulse absent [Recovered/Resolved]
  - Circulatory collapse [Recovered/Resolved]
  - Seizure [Recovered/Resolved]

NARRATIVE: CASE EVENT DATE: 20241115
